FAERS Safety Report 4643081-2 (Version None)
Quarter: 2005Q2

REPORT INFORMATION
  Report Type: 
  Country: None (occurrence: None)
  Receive Date: 20050422
  Receipt Date: 20050408
  Transmission Date: 20051028
  Serious: Yes (Death, Hospitalization)
  Sender: FDA-Public Use
  Company Number: 2004076135

PATIENT
  Sex: Female

DRUGS (2)
  1. GEODON [Suspect]
     Indication: MANIA
     Dosage: 20 MG INTRAMUSCULAR
     Route: 030
  2. ANTIPSYCHOTICS (ANTIPSYCHOTICS) [Suspect]
     Indication: MANIA

REACTIONS (2)
  - CARDIO-RESPIRATORY ARREST [None]
  - ELECTROCARDIOGRAM QT CORRECTED INTERVAL PROLONGED [None]
